FAERS Safety Report 6769993-1 (Version None)
Quarter: 2010Q2

REPORT INFORMATION
  Report Type: 
  Country: None (occurrence: None)
  Receive Date: 20100615
  Receipt Date: 20100503
  Transmission Date: 20101027
  Serious: Yes (Other)
  Sender: FDA-Public Use
  Company Number: NL-ASTRAZENECA-2010SE22562

PATIENT
  Sex: Female

DRUGS (8)
  1. SEROQUEL [Suspect]
     Indication: BIPOLAR I DISORDER
     Route: 048
  2. SEROQUEL [Suspect]
     Route: 048
  3. LITHIUM [Suspect]
     Indication: BIPOLAR I DISORDER
  4. LITHIUM [Suspect]
  5. DEPAKENE [Suspect]
     Indication: BIPOLAR I DISORDER
  6. DEPAKENE [Suspect]
  7. ZOLOFT [Suspect]
     Indication: BIPOLAR I DISORDER
  8. ZOLOFT [Suspect]

REACTIONS (4)
  - HOMICIDAL IDEATION [None]
  - SOMNOLENCE [None]
  - SUICIDAL IDEATION [None]
  - WEIGHT INCREASED [None]
